FAERS Safety Report 9225203 (Version 1)
Quarter: 2013Q1

REPORT INFORMATION
  Report Type: Spontaneous
  Country: US (occurrence: None)
  Receive Date: 20120912
  Receipt Date: 20120912
  Transmission Date: 20140127
  Serious: Yes (Hospitalization)
  Sender: FDA-Public Use
  Company Number: 2012SP031682

PATIENT
  Age: 53 Year
  Sex: Male
  Weight: 94 kg

DRUGS (1)
  1. SAPHRIS [Suspect]
     Indication: SCHIZOPHRENIA
     Dates: start: 20110910, end: 20110921

REACTIONS (1)
  - Presyncope [None]
